FAERS Safety Report 22618426 (Version 1)
Quarter: 2023Q2

REPORT INFORMATION
  Report Type: Spontaneous
  Country: US (occurrence: US)
  Receive Date: 20230620
  Receipt Date: 20230620
  Transmission Date: 20230722
  Serious: No
  Sender: FDA-Public Use
  Company Number: US-ABBVIE-5292893

PATIENT
  Age: 37 Year
  Sex: Female

DRUGS (4)
  1. BOTOX COSMETIC [Suspect]
     Active Substance: ONABOTULINUMTOXINA
     Indication: Skin wrinkling
     Dosage: FREQUENCY: SINGLE; 22 U IN GLABELLA
     Route: 065
     Dates: start: 20230507, end: 20230507
  2. BOTOX COSMETIC [Suspect]
     Active Substance: ONABOTULINUMTOXINA
     Indication: Skin wrinkling
     Dosage: TIME INTERVAL: AS NECESSARY: FREQUENCY: SINGLE; 10 U FRONTALIS
     Route: 065
     Dates: start: 20230507, end: 20230507
  3. BOTOX COSMETIC [Suspect]
     Active Substance: ONABOTULINUMTOXINA
     Indication: Skin wrinkling
     Dosage: TIME INTERVAL: AS NECESSARY: FREQUENCY: SINGLE; 12 U RIGHT CROW^S FEET
     Route: 065
     Dates: start: 20230507, end: 20230507
  4. BOTOX COSMETIC [Suspect]
     Active Substance: ONABOTULINUMTOXINA
     Indication: Skin wrinkling
     Dosage: TIME INTERVAL: AS NECESSARY: FREQUENCY: SINGLE; 9 U LEFT CROW^S FEET
     Route: 065
     Dates: start: 20230507, end: 20230507

REACTIONS (2)
  - Eczema [Recovering/Resolving]
  - Product preparation error [Unknown]

NARRATIVE: CASE EVENT DATE: 20230601
